FAERS Safety Report 5102168-0 (Version None)
Quarter: 2006Q3

REPORT INFORMATION
  Report Type: 
  Country: None (occurrence: None)
  Receive Date: 20060912
  Receipt Date: 20060510
  Transmission Date: 20061208
  Serious: Yes (Hospitalization, Other)
  Sender: FDA-Public Use
  Company Number: TW-ABBOTT-06P-153-0332977-00

PATIENT
  Sex: Female
  Weight: 60.4 kg

DRUGS (52)
  1. HUMIRA [Suspect]
     Indication: RHEUMATOID ARTHRITIS
     Route: 058
     Dates: start: 20031213, end: 20060419
  2. IFOSFAMIDE [Concomitant]
     Indication: CHEMOTHERAPY
     Dates: start: 20060501, end: 20060501
  3. IFOSFAMIDE [Concomitant]
     Dates: start: 20060621, end: 20060621
  4. IFOSFAMIDE [Concomitant]
     Dates: start: 20060701, end: 20060701
  5. IFOSFAMIDE [Concomitant]
     Dates: start: 20060801, end: 20060801
  6. CISPLATIN [Concomitant]
     Indication: CHEMOTHERAPY
     Dates: start: 20060501, end: 20060501
  7. CISPLATIN [Concomitant]
     Dates: start: 20060621, end: 20060621
  8. CARBOPLATIN [Concomitant]
     Indication: CHEMOTHERAPY
     Dates: start: 20060701, end: 20060701
  9. CARBOPLATIN [Concomitant]
     Dates: start: 20060801, end: 20060801
  10. METOCLOPRAMIDE HYDROCHLORIDE [Concomitant]
     Indication: DRUG USE FOR UNKNOWN INDICATION
     Route: 048
  11. METOCLOPRAMIDE HYDROCHLORIDE [Concomitant]
     Route: 048
  12. METOCLOPRAMIDE HYDROCHLORIDE [Concomitant]
     Route: 048
  13. VITAMIN B6 [Concomitant]
     Indication: DRUG USE FOR UNKNOWN INDICATION
     Route: 048
  14. FOLIC ACID [Concomitant]
     Indication: DRUG USE FOR UNKNOWN INDICATION
     Route: 048
  15. FOLIC ACID [Concomitant]
     Route: 048
  16. FOLIC ACID [Concomitant]
     Route: 048
  17. FOLIC ACID [Concomitant]
     Route: 048
  18. FERROUS GLUCO-B [Concomitant]
     Indication: DRUG USE FOR UNKNOWN INDICATION
     Route: 048
  19. FERROUS GLUCO-B [Concomitant]
     Route: 048
  20. FERROUS GLUCO-B [Concomitant]
     Route: 048
  21. FERROUS GLUCO-B [Concomitant]
     Route: 048
  22. SKYTRIL [Concomitant]
     Indication: DRUG USE FOR UNKNOWN INDICATION
     Route: 048
  23. ZOLPIDEM TARTRATE [Concomitant]
     Indication: DRUG USE FOR UNKNOWN INDICATION
     Route: 048
  24. ZOLPIDEM TARTRATE [Concomitant]
     Route: 048
  25. ZOLPIDEM TARTRATE [Concomitant]
     Route: 048
  26. LEDERSCON [Concomitant]
     Indication: DRUG USE FOR UNKNOWN INDICATION
     Route: 048
  27. MEDICON A [Concomitant]
     Indication: DRUG USE FOR UNKNOWN INDICATION
     Route: 048
  28. EM VOREN [Concomitant]
     Indication: DRUG USE FOR UNKNOWN INDICATION
     Route: 048
  29. PREDNISOLONE [Concomitant]
     Indication: DRUG USE FOR UNKNOWN INDICATION
     Route: 048
  30. PREDNISOLONE [Concomitant]
     Route: 048
  31. CLONAZEPAM [Concomitant]
     Indication: DRUG USE FOR UNKNOWN INDICATION
     Route: 048
  32. CLONAZEPAM [Concomitant]
     Route: 048
  33. BECOSYM FORTE [Concomitant]
     Indication: DRUG USE FOR UNKNOWN INDICATION
     Route: 048
  34. BECOSYM FORTE [Concomitant]
     Route: 048
  35. BECOSYM FORTE [Concomitant]
     Route: 048
  36. MAGNESIUM OXIDE [Concomitant]
     Indication: DRUG USE FOR UNKNOWN INDICATION
     Route: 048
  37. MAGNESIUM OXIDE [Concomitant]
     Route: 048
  38. MAGNESIUM OXIDE [Concomitant]
     Route: 048
  39. MAGNESIUM OXIDE [Concomitant]
     Route: 048
  40. BENZONATATE [Concomitant]
     Indication: DRUG USE FOR UNKNOWN INDICATION
     Route: 048
  41. DIMETICONE [Concomitant]
     Indication: DRUG USE FOR UNKNOWN INDICATION
     Route: 048
  42. PARACETAMOL [Concomitant]
     Indication: DRUG USE FOR UNKNOWN INDICATION
     Route: 048
  43. PARACETAMOL [Concomitant]
     Route: 048
  44. (C) BM SOLUTION [Concomitant]
     Indication: DRUG USE FOR UNKNOWN INDICATION
     Route: 048
  45. AMLODIPINE [Concomitant]
     Indication: DRUG USE FOR UNKNOWN INDICATION
     Route: 048
  46. AMLODIPINE [Concomitant]
     Route: 048
  47. DOMPERIDONE [Concomitant]
     Indication: DRUG USE FOR UNKNOWN INDICATION
     Route: 048
  48. CIMEWALL [Concomitant]
     Indication: DRUG USE FOR UNKNOWN INDICATION
     Route: 048
  49. BACLOFEN [Concomitant]
     Indication: DRUG USE FOR UNKNOWN INDICATION
     Route: 048
  50. ZOPICLONE [Concomitant]
     Indication: DRUG USE FOR UNKNOWN INDICATION
     Route: 048
  51. CEFADROXIL [Concomitant]
     Indication: DRUG USE FOR UNKNOWN INDICATION
     Route: 048
  52. CM EYE DROP [Concomitant]
     Indication: DRUG USE FOR UNKNOWN INDICATION
     Route: 047

REACTIONS (33)
  - ABDOMINAL PAIN [None]
  - ADENOMYOSIS [None]
  - AORTIC DISORDER [None]
  - ARTERIOSCLEROSIS [None]
  - C-REACTIVE PROTEIN INCREASED [None]
  - CANDIDIASIS [None]
  - CARDIOMEGALY [None]
  - CERVICITIS [None]
  - CHILLS [None]
  - CLEAR CELL SARCOMA OF THE KIDNEY [None]
  - DYSURIA [None]
  - ESCHERICHIA INFECTION [None]
  - FLANK PAIN [None]
  - HEPATIC STEATOSIS [None]
  - HYDRONEPHROSIS [None]
  - ILEUS [None]
  - LEIOMYOMA [None]
  - LUNG INFILTRATION [None]
  - MUSCLE DISORDER [None]
  - NEPHRITIS [None]
  - OSTEOARTHRITIS [None]
  - PELVIC ABSCESS [None]
  - PELVIC NEOPLASM [None]
  - PLEURAL FIBROSIS [None]
  - PRODUCTIVE COUGH [None]
  - PULMONARY GRANULOMA [None]
  - PYREXIA [None]
  - RENAL CYST [None]
  - RENAL LIPOMATOSIS [None]
  - SPINAL OSTEOARTHRITIS [None]
  - SPUTUM CULTURE POSITIVE [None]
  - UTERINE CANCER [None]
  - VAGINAL INFECTION [None]
